FAERS Safety Report 6613527-9 (Version None)
Quarter: 2010Q1

REPORT INFORMATION
  Report Type: 
  Country: None (occurrence: None)
  Receive Date: 20100225
  Receipt Date: 20100217
  Transmission Date: 20100710
  Serious: Yes (Hospitalization)
  Sender: FDA-Public Use
  Company Number: SP02794

PATIENT
  Age: 60 Year
  Sex: Female
  Weight: 52.1637 kg

DRUGS (3)
  1. OSMOPREP [Suspect]
     Indication: BOWEL PREPARATION
     Dosage: ORAL
     Route: 048
     Dates: start: 20100211, end: 20100211
  2. VITAMINS [Concomitant]
  3. SUPPLEMENTS (UNSPECIFIED) [Concomitant]

REACTIONS (14)
  - BLOOD POTASSIUM ABNORMAL [None]
  - BLOOD SODIUM ABNORMAL [None]
  - BREAST PAIN [None]
  - CONTUSION [None]
  - DIZZINESS [None]
  - ELECTROLYTE IMBALANCE [None]
  - ERUCTATION [None]
  - FEELING COLD [None]
  - HEAD INJURY [None]
  - INFLUENZA [None]
  - LOSS OF CONSCIOUSNESS [None]
  - NECK PAIN [None]
  - PARAESTHESIA ORAL [None]
  - VESSEL PUNCTURE SITE PAIN [None]
